FAERS Safety Report 14512559 (Version 4)
Quarter: 2018Q1

REPORT INFORMATION
  Report Type: Spontaneous
  Country: JP (occurrence: JP)
  Receive Date: 20180209
  Receipt Date: 20180306
  Transmission Date: 20180509
  Serious: Yes (Death)
  Sender: FDA-Public Use
  Company Number: JP-JNJFOC-20180209494

PATIENT

DRUGS (2)
  1. HALOMONTH [Suspect]
     Active Substance: HALOPERIDOL DECANOATE
     Indication: SCHIZOPHRENIA
     Dosage: AVERAGE DOSE: 97 MG
     Route: 065
  2. RISPERDAL CONSTA [Suspect]
     Active Substance: RISPERIDONE
     Indication: SCHIZOPHRENIA
     Dosage: AVERAGE DOSE: 42.7 MG
     Route: 065

REACTIONS (3)
  - Death [Fatal]
  - Adverse drug reaction [Unknown]
  - Drug ineffective [Unknown]
